FAERS Safety Report 12620137 (Version 1)
Quarter: 2016Q3

REPORT INFORMATION
  Report Type: Spontaneous
  Country: GB (occurrence: GB)
  Receive Date: 20160803
  Receipt Date: 20160803
  Transmission Date: 20161109
  Serious: Yes (Hospitalization)
  Sender: FDA-Public Use
  Company Number: GB-TEVA-676638ACC

PATIENT
  Age: 65 Year
  Sex: Male
  Weight: 70 kg

DRUGS (9)
  1. RENACET [Concomitant]
     Dosage: 2850 MILLIGRAM DAILY;
  2. GLICLAZIDE [Concomitant]
     Active Substance: GLICLAZIDE
     Dosage: 40 MILLIGRAM DAILY;
  3. LANSOPRAZOLE. [Concomitant]
     Active Substance: LANSOPRAZOLE
     Dosage: 30 MILLIGRAM DAILY;
  4. METRONIDAZOLE. [Concomitant]
     Active Substance: METRONIDAZOLE
     Dosage: 1200 MILLIGRAM DAILY;
  5. ASPIRIN. [Concomitant]
     Active Substance: ASPIRIN
     Dosage: 75 MILLIGRAM DAILY;
  6. CLARITHROMYCIN. [Suspect]
     Active Substance: CLARITHROMYCIN
     Indication: HELICOBACTER INFECTION
     Dosage: 1000 MILLIGRAM DAILY;
     Route: 048
     Dates: start: 20160616, end: 20160620
  7. ATORVASTATIN [Concomitant]
     Active Substance: ATORVASTATIN
     Dosage: PATIENT STOPPED TAKING
  8. ALFACALCIDOL [Concomitant]
     Active Substance: ALFACALCIDOL
     Dosage: .5 IU (INTERNATIONAL UNIT) DAILY;
  9. DILTIAZEM. [Concomitant]
     Active Substance: DILTIAZEM
     Dosage: 180 MILLIGRAM DAILY;

REACTIONS (16)
  - Hallucination [Recovered/Resolved]
  - Abdominal distension [Recovered/Resolved]
  - Diarrhoea [Recovered/Resolved]
  - Tongue discolouration [Recovered/Resolved]
  - Ageusia [Recovered/Resolved]
  - Dizziness [Recovered/Resolved]
  - Amnesia [Unknown]
  - Logorrhoea [Unknown]
  - Mydriasis [Unknown]
  - Anxiety [Recovered/Resolved]
  - Flatulence [Recovered/Resolved]
  - Insomnia [Recovered/Resolved]
  - Tooth discolouration [Recovered/Resolved]
  - Drug prescribing error [Unknown]
  - Tinnitus [Recovered/Resolved]
  - Vertigo [Recovered/Resolved]

NARRATIVE: CASE EVENT DATE: 20160619
